FAERS Safety Report 6607950-6 (Version None)
Quarter: 2010Q1

REPORT INFORMATION
  Report Type: 
  Country: None (occurrence: None)
  Receive Date: 20100225
  Receipt Date: 20100225
  Transmission Date: 20100710
  Serious: Yes (Death)
  Sender: FDA-Public Use
  Company Number: None

PATIENT
  Sex: Male

DRUGS (1)
  1. IRINOTECAN HYDROCHLORIDE [Suspect]
     Indication: RECTAL CANCER
     Dosage: 250 MG EVERY OTHER WEEK IV
     Route: 042
     Dates: start: 20100114, end: 20100203

REACTIONS (1)
  - DEATH [None]
